FAERS Safety Report 11567845 (Version 1)
Quarter: 2015Q3

REPORT INFORMATION
  Report Type: Spontaneous
  Country: US (occurrence: None)
  Receive Date: 20150928
  Receipt Date: 20150928
  Transmission Date: 20151125
  Serious: Yes (Other)
  Sender: FDA-Public Use
  Company Number: None

PATIENT
  Age: 67 Year
  Sex: Female

DRUGS (1)
  1. MODERIBA [Suspect]
     Active Substance: RIBAVIRIN
     Dosage: 1000/DAY

REACTIONS (2)
  - Dry mouth [None]
  - Muscle twitching [None]

NARRATIVE: CASE EVENT DATE: 20150924
